FAERS Safety Report 10443897 (Version 1)
Quarter: 2014Q3

REPORT INFORMATION
  Report Type: Spontaneous
  Country: US (occurrence: US)
  Receive Date: 20140910
  Receipt Date: 20140910
  Transmission Date: 20150326
  Serious: Yes (Hospitalization)
  Sender: FDA-Public Use
  Company Number: US-TARO-2013P1013385

PATIENT
  Age: 69 Year
  Sex: Female
  Weight: 69.4 kg

DRUGS (9)
  1. ANTIBIOTIC (UNSPECIFIED) [Suspect]
     Active Substance: UNSPECIFIED INGREDIENT
     Dates: start: 2009
  2. PNEUMOCOCCAL VACCINE POLYVALENT NOS [Suspect]
     Active Substance: PNEUMOCOCCAL VACCINE POLYVALENT
     Dosage: X1
     Dates: start: 2012, end: 2012
  3. WARFARIN SODIUM TABLETS USP 7.5MG [Suspect]
     Active Substance: WARFARIN SODIUM
     Indication: PULMONARY EMBOLISM
     Route: 048
     Dates: start: 2008, end: 2009
  4. WARFARIN (BARR) [Suspect]
     Active Substance: WARFARIN
     Indication: PULMONARY EMBOLISM
     Dates: start: 2009, end: 2010
  5. WARFARIN SODIUM TABLETS USP 1MG [Suspect]
     Active Substance: WARFARIN SODIUM
     Dates: start: 2010
  6. WARFARIN SODIUM TABLETS USP 1MG [Suspect]
     Active Substance: WARFARIN SODIUM
     Indication: PULMONARY EMBOLISM
     Route: 048
     Dates: start: 2008, end: 2009
  7. WARFARIN SODIUM TABLETS USP 7.5MG [Suspect]
     Active Substance: WARFARIN SODIUM
     Dates: start: 2010
  8. SYNTHROID [Concomitant]
     Active Substance: LEVOTHYROXINE SODIUM
  9. WARFARIN (UNSPECIFIED MANUFACTURER) [Suspect]
     Active Substance: WARFARIN
     Indication: PULMONARY EMBOLISM
     Dates: start: 2009, end: 2010

REACTIONS (9)
  - Pruritus [Recovered/Resolved]
  - Hypersensitivity [Unknown]
  - Influenza [Unknown]
  - Pyrexia [Unknown]
  - Pharyngitis streptococcal [Unknown]
  - Nervousness [Unknown]
  - Rash macular [Recovered/Resolved]
  - Urticaria [Recovered/Resolved]
  - Oropharyngeal pain [Unknown]

NARRATIVE: CASE EVENT DATE: 2008
